FAERS Safety Report 13258444 (Version 1)
Quarter: 2017Q1

REPORT INFORMATION
  Report Type: Report from Study
  Country: BR (occurrence: BR)
  Receive Date: 20170222
  Receipt Date: 20170222
  Transmission Date: 20170428
  Serious: Yes (Death, Other)
  Sender: FDA-Public Use
  Company Number: BR-ROCHE-1895553

PATIENT
  Sex: Female

DRUGS (6)
  1. TRASTUZUMAB [Suspect]
     Active Substance: TRASTUZUMAB
     Indication: HER-2 POSITIVE BREAST CANCER
     Route: 065
  2. FLUOROURACIL. [Suspect]
     Active Substance: FLUOROURACIL
     Indication: HER-2 POSITIVE BREAST CANCER
     Dosage: 6 CYCLES
     Route: 065
  3. DOCETAXEL. [Suspect]
     Active Substance: DOCETAXEL
     Indication: HER-2 POSITIVE BREAST CANCER
     Dosage: 4 CYCLES
     Route: 065
  4. EPIRUBICIN [Suspect]
     Active Substance: EPIRUBICIN
     Indication: HER-2 POSITIVE BREAST CANCER
     Route: 065
  5. CYCLOPHOSPHAMIDE. [Suspect]
     Active Substance: CYCLOPHOSPHAMIDE
     Indication: HER-2 POSITIVE BREAST CANCER
     Dosage: 500-600 MG/M2
     Route: 065
  6. DOCETAXEL. [Suspect]
     Active Substance: DOCETAXEL
     Dosage: 4 TO 6 CYCLES OF 80-100 MG/M2
     Route: 065

REACTIONS (2)
  - Cardiotoxicity [Unknown]
  - Febrile neutropenia [Fatal]
